FAERS Safety Report 7298119-3 (Version None)
Quarter: 2011Q1

REPORT INFORMATION
  Report Type: 
  Country: None (occurrence: None)
  Receive Date: 20110208
  Receipt Date: 20110204
  Transmission Date: 20110831
  Serious: Yes (Death)
  Sender: FDA-Public Use
  Company Number: 2011SP005394

PATIENT
  Age: 73 Year

DRUGS (1)
  1. TEMODAL [Suspect]
     Indication: GLIOBLASTOMA

REACTIONS (4)
  - ANAPLASTIC ASTROCYTOMA [None]
  - NEOPLASM PROGRESSION [None]
  - GLIOBLASTOMA [None]
  - GENERAL PHYSICAL HEALTH DETERIORATION [None]
